FAERS Safety Report 22767691 (Version 5)
Quarter: 2024Q1

REPORT INFORMATION
  Report Type: Report from Study
  Country: US (occurrence: US)
  Receive Date: 20230731
  Receipt Date: 20240129
  Transmission Date: 20240409
  Serious: Yes (Other)
  Sender: FDA-Public Use
  Company Number: US-002147023-NVSC2023US164254

PATIENT
  Age: 61 Year
  Sex: Male

DRUGS (6)
  1. COSENTYX [Suspect]
     Active Substance: SECUKINUMAB
     Indication: Psoriasis
     Dosage: UNK, QMO (EVERY 4 WEEKS)
     Route: 065
  2. COSENTYX [Suspect]
     Active Substance: SECUKINUMAB
     Indication: Psoriatic arthropathy
     Dosage: 300 MG, QMO
     Route: 058
     Dates: start: 20230401
  3. KETOCONAZOLE [Suspect]
     Active Substance: KETOCONAZOLE
     Indication: Seborrhoeic dermatitis
     Dosage: UNK (SHAMPOO)
     Route: 061
  4. HYDROCORTISONE [Suspect]
     Active Substance: HYDROCORTISONE
     Indication: Seborrhoeic dermatitis
     Dosage: UNK (TOPICAL CREAM)
     Route: 061
  5. CLOBETASOL [Suspect]
     Active Substance: CLOBETASOL
     Indication: Psoriasis
     Dosage: UNK (SCALP SOLUTION)
     Route: 065
  6. BETAMETHASONE [Suspect]
     Active Substance: BETAMETHASONE\BETAMETHASONE DIPROPIONATE
     Indication: Psoriasis
     Dosage: UNK (TOPICAL OINTMENT)
     Route: 061

REACTIONS (19)
  - Psoriatic arthropathy [Not Recovered/Not Resolved]
  - Seborrhoeic dermatitis [Recovering/Resolving]
  - Intertrigo [Recovering/Resolving]
  - Illness [Recovering/Resolving]
  - Seborrhoeic keratosis [Unknown]
  - Dermatitis [Unknown]
  - Injury [Unknown]
  - Neurofibroma [Unknown]
  - Dermal cyst [Unknown]
  - Angular cheilitis [Unknown]
  - Skin maceration [Unknown]
  - Oral discomfort [Unknown]
  - Skin plaque [Unknown]
  - Pruritus [Unknown]
  - Dry skin [Unknown]
  - Papule [Unknown]
  - Acrochordon [Unknown]
  - Psoriasis [Not Recovered/Not Resolved]
  - Drug ineffective [Unknown]

NARRATIVE: CASE EVENT DATE: 20230701
